FAERS Safety Report 17916665 (Version 4)
Quarter: 2021Q1

REPORT INFORMATION
  Report Type: Report from Study
  Country: JP (occurrence: JP)
  Receive Date: 20200619
  Receipt Date: 20210107
  Transmission Date: 20210419
  Serious: Yes (Death, Life-Threatening, Hospitalization, Other)
  Sender: FDA-Public Use
  Company Number: JP-GLAXOSMITHKLINE-JP2020JPN096698

PATIENT
  Age: 2 Month
  Sex: Male
  Weight: 3.9 kg

DRUGS (32)
  1. EPOPROSTENOL SODIUM. [Suspect]
     Active Substance: EPOPROSTENOL SODIUM
     Dosage: UNK
     Route: 041
     Dates: end: 20181111
  2. VOLIBRIS [Suspect]
     Active Substance: AMBRISENTAN
     Indication: PULMONARY HYPERTENSION
     Dosage: 0.1 MG/KG, 1D
     Route: 048
     Dates: start: 20171213, end: 20171215
  3. REVATIO [Suspect]
     Active Substance: SILDENAFIL CITRATE
     Dosage: 0.67 MG, TID
     Route: 048
     Dates: start: 20180106, end: 20180207
  4. VOLIBRIS [Suspect]
     Active Substance: AMBRISENTAN
     Dosage: UNK
     Route: 048
  5. REVATIO [Suspect]
     Active Substance: SILDENAFIL CITRATE
     Dosage: 2.67 MG, TID
     Route: 048
     Dates: start: 20180226, end: 20180304
  6. NITRIC OXIDE. [Concomitant]
     Active Substance: NITRIC OXIDE
     Indication: PULMONARY HYPERTENSION
     Dosage: UNK
     Route: 055
  7. DOPAMIN [Concomitant]
     Dosage: UNK
  8. FENTANYL. [Concomitant]
     Active Substance: FENTANYL
     Dosage: UNK
  9. XYZAL [Suspect]
     Active Substance: LEVOCETIRIZINE DIHYDROCHLORIDE
     Dosage: UNK
     Route: 048
  10. E KEPPRA [Concomitant]
     Active Substance: LEVETIRACETAM
     Dosage: UNK
     Route: 048
     Dates: start: 20180910, end: 20181110
  11. REVATIO [Suspect]
     Active Substance: SILDENAFIL CITRATE
     Indication: PULMONARY HYPERTENSION
     Dosage: 1.33 MG, TID
     Route: 048
     Dates: start: 20171124, end: 20171213
  12. DOBUTAMINE [Concomitant]
     Active Substance: DOBUTAMINE HYDROCHLORIDE
     Dosage: UNK
  13. SULBACILLIN [Concomitant]
     Active Substance: AMPICILLIN SODIUM\SULBACTAM SODIUM
     Dosage: UNK
  14. FLUITRAN [Concomitant]
     Active Substance: TRICHLORMETHIAZIDE
     Dosage: UNK
  15. SODIUM CHLORIDE. [Concomitant]
     Active Substance: SODIUM CHLORIDE
     Dosage: UNK
  16. EPOPROSTENOL SODIUM. [Suspect]
     Active Substance: EPOPROSTENOL SODIUM
     Dosage: UNK
     Route: 041
  17. REVATIO [Suspect]
     Active Substance: SILDENAFIL CITRATE
     Dosage: 1.33 MG, TID
     Route: 048
     Dates: start: 20180208, end: 20180214
  18. MIDAZOLAM. [Concomitant]
     Active Substance: MIDAZOLAM
     Dosage: UNK
  19. THYRADIN (LEVOTHYROXINE SODIUM) [Concomitant]
     Dosage: UNK
  20. ASPARA POTASSIUM [Concomitant]
     Active Substance: POTASSIUM ASPARTATE
     Dosage: UNK
  21. FUROSEMIDE. [Concomitant]
     Active Substance: FUROSEMIDE
     Dosage: 1.0 MG/KG, 1D
     Route: 048
  22. SPIRONOLACTONE. [Concomitant]
     Active Substance: SPIRONOLACTONE
     Dosage: 1.0 MG/KG, 1D
     Route: 048
  23. URSO [Concomitant]
     Active Substance: URSODIOL
     Dosage: UNK
  24. EPOPROSTENOL SODIUM. [Suspect]
     Active Substance: EPOPROSTENOL SODIUM
     Indication: PULMONARY HYPERTENSION
     Dosage: 2 NG/KG/MIN
     Route: 041
     Dates: start: 20171027
  25. EPOPROSTENOL SODIUM. [Suspect]
     Active Substance: EPOPROSTENOL SODIUM
     Dosage: 10.9 NG/KG/MIN
     Route: 041
  26. REVATIO [Suspect]
     Active Substance: SILDENAFIL CITRATE
     Dosage: 2 MG, TID
     Route: 048
     Dates: start: 20180215, end: 20180225
  27. ALBUMIN [Concomitant]
     Active Substance: ALBUMIN HUMAN
     Dosage: UNK
  28. MIYA?BM [Concomitant]
     Active Substance: CLOSTRIDIUM BUTYRICUM SPORES STRAIN M-55
     Dosage: UNK
  29. FAMOTIDINE. [Concomitant]
     Active Substance: FAMOTIDINE
     Dosage: UNK
  30. REVATIO [Suspect]
     Active Substance: SILDENAFIL CITRATE
     Dosage: 3.33 MG
     Route: 048
     Dates: start: 20180305, end: 20180731
  31. OLPRINONE HYDROCHLORIDE HYDRATE [Concomitant]
     Dosage: UNK
  32. EFFORTIL [Concomitant]
     Active Substance: ETILEFRINE HYDROCHLORIDE
     Dosage: UNK

REACTIONS (14)
  - Respiratory disorder [Recovered/Resolved]
  - Ventricular enlargement [Fatal]
  - Oedema [Unknown]
  - Atrial enlargement [Fatal]
  - Pulmonary arterial hypertension [Fatal]
  - Product use issue [Unknown]
  - Oliguria [Fatal]
  - Pulmonary vein stenosis [Unknown]
  - Pulmonary hypertension [Fatal]
  - Epilepsy [Unknown]
  - Blood pressure decreased [Fatal]
  - Pulmonary oedema [Fatal]
  - Right ventricular failure [Fatal]
  - Pulmonary veno-occlusive disease [Fatal]

NARRATIVE: CASE EVENT DATE: 20171030
